FAERS Safety Report 6272133-9 (Version None)
Quarter: 2009Q3

REPORT INFORMATION
  Report Type: 
  Country: None (occurrence: None)
  Receive Date: 20090717
  Receipt Date: 20090713
  Transmission Date: 20100115
  Serious: Yes (Life-Threatening)
  Sender: FDA-Public Use
  Company Number: DE-ASTRAZENECA-2009SE04674

PATIENT
  Age: 52 Year
  Sex: Female

DRUGS (3)
  1. METOPROLOL SUCCINATE [Suspect]
     Indication: HYPERTENSION
     Route: 048
     Dates: start: 20090401, end: 20090601
  2. CIPRAMIL [Suspect]
     Indication: ANXIETY DISORDER
     Route: 048
     Dates: start: 20090401, end: 20090601
  3. NEXIUM [Concomitant]
     Route: 048

REACTIONS (2)
  - FEAR OF DEATH [None]
  - PALPITATIONS [None]
